FAERS Safety Report 7878603-1 (Version None)
Quarter: 2011Q4

REPORT INFORMATION
  Report Type: 
  Country: None (occurrence: None)
  Receive Date: 20111028
  Receipt Date: 20111017
  Transmission Date: 20120403
  Serious: Yes (Other)
  Sender: FDA-Public Use
  Company Number: 2011SP049472

PATIENT

DRUGS (2)
  1. PEG-INTRON [Suspect]
     Indication: HEPATITIS C
     Dosage: 1.5 MCG/KG;QW;SC
     Route: 058
  2. REBETOL [Suspect]
     Indication: HEPATITIS C
     Dosage: QD;PO
     Route: 048

REACTIONS (17)
  - INFLUENZA LIKE ILLNESS [None]
  - DEPRESSION [None]
  - PNEUMONIA [None]
  - PELVIC INFECTION [None]
  - HEPATIC ENCEPHALOPATHY [None]
  - HEPATIC NEOPLASM MALIGNANT [None]
  - ADVERSE EVENT [None]
  - PLATELET COUNT DECREASED [None]
  - PERITONITIS BACTERIAL [None]
  - CYSTITIS HAEMORRHAGIC [None]
  - BRONCHITIS [None]
  - HAEMORRHAGE [None]
  - FATIGUE [None]
  - HAEMOGLOBIN DECREASED [None]
  - DRUG INTOLERANCE [None]
  - ASCITES [None]
  - NEUTROPHIL COUNT DECREASED [None]
